FAERS Safety Report 18254032 (Version 1)
Quarter: 2020Q3

REPORT INFORMATION
  Report Type: Report from Study
  Country: SV (occurrence: SV)
  Receive Date: 20200910
  Receipt Date: 20200910
  Transmission Date: 20201103
  Serious: Yes (Death)
  Sender: FDA-Public Use
  Company Number: SV-JNJFOC-20200908435

PATIENT
  Age: 44 Year
  Sex: Female

DRUGS (3)
  1. SILDENAFIL. [Concomitant]
     Active Substance: SILDENAFIL
  2. VENTAVIS [Suspect]
     Active Substance: ILOPROST
     Indication: PULMONARY ARTERIAL HYPERTENSION
     Dosage: 6 NEBULIZATIONS DAILY; 0.5 ML EVERY THREE HOURS
     Route: 055
     Dates: start: 20180108
  3. BOSENTAN. [Concomitant]
     Active Substance: BOSENTAN

REACTIONS (1)
  - Death [Fatal]
